FAERS Safety Report 10625510 (Version 1)
Quarter: 2014Q4

REPORT INFORMATION
  Report Type: Report from Study
  Country: US (occurrence: US)
  Receive Date: 20141204
  Receipt Date: 20141204
  Transmission Date: 20150529
  Serious: Yes (Hospitalization)
  Sender: FDA-Public Use
  Company Number: US-BAYER-2014-174123

PATIENT
  Age: 85 Year
  Sex: Male

DRUGS (1)
  1. NEXAVAR [Suspect]
     Active Substance: SORAFENIB
     Indication: HEPATIC CANCER
     Dosage: 400 MG, BID
     Route: 048
     Dates: start: 20141108, end: 201411

REACTIONS (4)
  - Pharyngeal ulceration [None]
  - Pharyngeal oedema [None]
  - Rash generalised [None]
  - Weight decreased [None]

NARRATIVE: CASE EVENT DATE: 20141109
